FAERS Safety Report 14191893 (Version 1)
Quarter: 2017Q4

REPORT INFORMATION
  Report Type: Spontaneous
  Country: US (occurrence: US)
  Receive Date: 20171115
  Receipt Date: 20171115
  Transmission Date: 20180321
  Serious: No
  Sender: FDA-Public Use
  Company Number: US-CELLTRION HEALTHCARE JAPAN K.K.-2017US014345

PATIENT

DRUGS (2)
  1. INFLECTRA [Suspect]
     Active Substance: INFLIXIMAB-DYYB
     Dosage: 500 MG EVERY 8 WEEKS
     Route: 065
     Dates: start: 20170824, end: 20170824
  2. INFLECTRA [Suspect]
     Active Substance: INFLIXIMAB-DYYB
     Indication: PSORIATIC ARTHROPATHY
     Dosage: 500 MG, EVENRY 8 WEEKS
     Route: 065

REACTIONS (2)
  - Drug prescribing error [Unknown]
  - Incorrect dose administered [Unknown]
